FAERS Safety Report 7951371-0 (Version None)
Quarter: 2011Q4

REPORT INFORMATION
  Report Type: 
  Country: None (occurrence: None)
  Receive Date: 20111129
  Receipt Date: 20111115
  Transmission Date: 20120403
  Serious: Yes (Hospitalization)
  Sender: FDA-Public Use
  Company Number: 1000024678

PATIENT
  Age: 84 Year
  Sex: Male

DRUGS (1)
  1. MEMANTINE HYDROCHLORIDE [Suspect]
     Dosage: 20 MG (20 MG, 1 IN 1D)
     Dates: start: 20110625, end: 20110817

REACTIONS (2)
  - PYREXIA [None]
  - COORDINATION ABNORMAL [None]
